FAERS Safety Report 24585343 (Version 1)
Quarter: 2024Q4

REPORT INFORMATION
  Report Type: Spontaneous
  Country: US (occurrence: US)
  Receive Date: 20241106
  Receipt Date: 20241106
  Transmission Date: 20250114
  Serious: No
  Sender: VIFOR (INTERNATIONAL) INC.
  Company Number: US-Vifor (International) Inc.-VIT-2024-09617

PATIENT
  Age: 30 Year
  Sex: Male
  Weight: 79 kg

DRUGS (2)
  1. MIRCERA [Suspect]
     Active Substance: METHOXY POLYETHYLENE GLYCOL-EPOETIN BETA
     Indication: Product used for unknown indication
  2. MIRCERA [Suspect]
     Active Substance: METHOXY POLYETHYLENE GLYCOL-EPOETIN BETA
     Dosage: MIRCERA DOSE NUMBER: 2 AND DOSE CATEGORY: 02.
     Dates: start: 20240917

REACTIONS (2)
  - Drug hypersensitivity [Recovered/Resolved]
  - Urticaria [Recovered/Resolved]

NARRATIVE: CASE EVENT DATE: 20240917
